FAERS Safety Report 25149927 (Version 1)
Quarter: 2025Q2

REPORT INFORMATION
  Report Type: Spontaneous
  Country: AU (occurrence: AU)
  Receive Date: 20250402
  Receipt Date: 20250402
  Transmission Date: 20250717
  Serious: Yes (Death, Other)
  Sender: GALPHARM INTERNATIONAL
  Company Number: AU-HALEON-2226103

PATIENT
  Sex: Female

DRUGS (1)
  1. ACETAMINOPHEN [Suspect]
     Active Substance: ACETAMINOPHEN
     Indication: Analgesic therapy
     Route: 065

REACTIONS (2)
  - Completed suicide [Fatal]
  - Intentional overdose [Fatal]
